FAERS Safety Report 9176569 (Version 3)
Quarter: 2014Q2

REPORT INFORMATION
  Report Type: Spontaneous
  Country: US (occurrence: US)
  Receive Date: 20130321
  Receipt Date: 20140501
  Transmission Date: 20141212
  Serious: Yes (Congenital Anomaly, Other)
  Sender: FDA-Public Use
  Company Number: US-JNJFOC-20130311263

PATIENT
  Sex: Male

DRUGS (5)
  1. TOPAMAX [Suspect]
     Indication: FOETAL EXPOSURE DURING PREGNANCY
     Route: 064
     Dates: start: 200704, end: 200802
  2. TYLENOL [Suspect]
     Route: 064
  3. TYLENOL [Suspect]
     Indication: FOETAL EXPOSURE DURING PREGNANCY
     Route: 064
  4. ZOFRAN [Suspect]
     Indication: FOETAL EXPOSURE DURING PREGNANCY
     Route: 064
  5. FOLIC ACID [Concomitant]
     Indication: FOETAL EXPOSURE DURING PREGNANCY
     Route: 064

REACTIONS (8)
  - Hypospadias [Recovering/Resolving]
  - Chordee [Recovering/Resolving]
  - Aortic valve incompetence [Recovered/Resolved]
  - Coarctation of the aorta [Recovered/Resolved]
  - Cardiac murmur [Recovered/Resolved]
  - Cardiac septal defect [Recovered/Resolved]
  - Atrial septal defect [Recovered/Resolved]
  - Emotional disorder [Unknown]
